FAERS Safety Report 8551568-5 (Version None)
Quarter: 2012Q3

REPORT INFORMATION
  Report Type: 
  Country: None (occurrence: None)
  Receive Date: 20120730
  Receipt Date: 20120228
  Transmission Date: 20120928
  Serious: No
  Sender: FDA-Public Use
  Company Number: US-ALLERGAN-1202745US

PATIENT
  Age: 61 Year
  Sex: Female

DRUGS (1)
  1. LATISSE [Suspect]
     Indication: GROWTH OF EYELASHES
     Dosage: 4 GTT, QHS
     Route: 061
     Dates: end: 20120224

REACTIONS (6)
  - MADAROSIS [None]
  - EYELID VASCULAR DISORDER [None]
  - RASH PUSTULAR [None]
  - INCORRECT DOSE ADMINISTERED [None]
  - HAIR DISORDER [None]
  - INAPPROPRIATE SCHEDULE OF DRUG ADMINISTRATION [None]
